FAERS Safety Report 10089194 (Version 1)
Quarter: 2014Q2

REPORT INFORMATION
  Report Type: Report from Study
  Country: US (occurrence: US)
  Receive Date: 20140421
  Receipt Date: 20140421
  Transmission Date: 20141212
  Serious: Yes (Other)
  Sender: FDA-Public Use
  Company Number: US-ROCHE-1380327

PATIENT
  Sex: Female

DRUGS (3)
  1. PERJETA [Suspect]
     Indication: BREAST CANCER
     Route: 050
     Dates: start: 20140131
  2. HERCEPTIN [Suspect]
     Indication: BREAST CANCER
     Route: 050
     Dates: start: 20140131
  3. DOCETAXEL [Concomitant]
     Indication: BREAST CANCER
     Route: 050
     Dates: start: 20140131

REACTIONS (19)
  - Gastrooesophageal reflux disease [Not Recovered/Not Resolved]
  - Nausea [Not Recovered/Not Resolved]
  - Vomiting [Not Recovered/Not Resolved]
  - Dehydration [Unknown]
  - Peripheral swelling [Not Recovered/Not Resolved]
  - Rash [Not Recovered/Not Resolved]
  - Cough [Unknown]
  - Decreased appetite [Unknown]
  - Anaemia [Unknown]
  - Myalgia [Unknown]
  - Dyspnoea [Unknown]
  - Headache [Unknown]
  - Pyrexia [Unknown]
  - Pruritus [Unknown]
  - Muscle twitching [Unknown]
  - Asthenia [Unknown]
  - Hyperaesthesia [Unknown]
  - Pain [Unknown]
  - Pain of skin [Unknown]
